FAERS Safety Report 5333743-6 (Version None)
Quarter: 2007Q2

REPORT INFORMATION
  Report Type: 
  Country: None (occurrence: None)
  Receive Date: 20070524
  Receipt Date: 20070516
  Transmission Date: 20071010
  Serious: Yes (Congenital Anomaly, Other)
  Sender: FDA-Public Use
  Company Number: US-PFIZER INC-2006098371

PATIENT
  Sex: Female
  Weight: 2.7 kg

DRUGS (3)
  1. VIRACEPT [Suspect]
     Indication: HIV INFECTION
     Dosage: DAILY DOSE:2500MG-FREQ:DAILY
     Route: 048
  2. COMBIVIR [Suspect]
     Indication: HIV INFECTION
     Dosage: TEXT:2 TABLETS-FREQ:DAILY
     Route: 048
  3. BACTRIM [Concomitant]

REACTIONS (4)
  - ADRENOGENITAL SYNDROME [None]
  - ATRIAL SEPTAL DEFECT [None]
  - DRUG EXPOSURE DURING PREGNANCY [None]
  - EBSTEIN'S ANOMALY [None]
